FAERS Safety Report 7774321-9 (Version None)
Quarter: 2011Q3

REPORT INFORMATION
  Report Type: 
  Country: None (occurrence: None)
  Receive Date: 20110923
  Receipt Date: 20110912
  Transmission Date: 20111222
  Serious: Yes (Other)
  Sender: FDA-Public Use
  Company Number: IT-SANOFI-AVENTIS-2011SA060955

PATIENT
  Age: 24 Year
  Sex: Female

DRUGS (1)
  1. LEFLUNOMIDE [Suspect]
     Route: 065

REACTIONS (6)
  - RASH [None]
  - DERMATITIS BULLOUS [None]
  - CUTANEOUS LUPUS ERYTHEMATOSUS [None]
  - SKIN BURNING SENSATION [None]
  - ERYTHEMA MULTIFORME [None]
  - BUTTERFLY RASH [None]
